FAERS Safety Report 18800124 (Version 1)
Quarter: 2021Q1

REPORT INFORMATION
  Report Type: Spontaneous
  Country: AU (occurrence: AU)
  Receive Date: 20210128
  Receipt Date: 20210128
  Transmission Date: 20210419
  Serious: Yes (Other)
  Sender: FDA-Public Use
  Company Number: AU-SA-2021SA022260

PATIENT
  Sex: Female

DRUGS (3)
  1. CLEXANE [Suspect]
     Active Substance: ENOXAPARIN SODIUM
     Dosage: UNK
     Route: 058
  2. TELMISARTAN. [Concomitant]
     Active Substance: TELMISARTAN
     Dosage: UNK
  3. ASPIRINE [Suspect]
     Active Substance: ASPIRIN

REACTIONS (3)
  - Urticaria [Unknown]
  - Vomiting [Unknown]
  - Angioedema [Unknown]
